FAERS Safety Report 7419659-X (Version None)
Quarter: 2011Q2

REPORT INFORMATION
  Report Type: 
  Country: None (occurrence: None)
  Receive Date: 20110418
  Receipt Date: 20110407
  Transmission Date: 20111010
  Serious: Yes (Hospitalization)
  Sender: FDA-Public Use
  Company Number: FR-JNJFOC-20110403548

PATIENT
  Age: 65 Year
  Sex: Male

DRUGS (12)
  1. CORDARONE [Concomitant]
     Route: 065
  2. ELISOR [Concomitant]
     Route: 065
  3. TRIATEC [Concomitant]
     Route: 065
  4. TAVANIC [Suspect]
     Indication: ENDOCARDITIS
     Route: 048
  5. RIFADIN [Concomitant]
     Route: 065
  6. KARDEGIC [Concomitant]
     Route: 065
  7. CARDENSIEL [Concomitant]
     Route: 065
  8. CLINDAMYCIN [Suspect]
     Indication: ENDOCARDITIS
     Route: 042
  9. TARGOCID [Concomitant]
     Route: 065
  10. PREVISCAN (FLUINDIONE) [Concomitant]
     Route: 065
  11. SERESTA [Concomitant]
     Route: 065
  12. LASIX [Concomitant]
     Route: 065

REACTIONS (4)
  - TOXIC SKIN ERUPTION [None]
  - RASH [None]
  - NEUTROPENIA [None]
  - PRURITUS [None]
